FAERS Safety Report 10419610 (Version 1)
Quarter: 2014Q3

REPORT INFORMATION
  Report Type: Spontaneous
  Country: CH (occurrence: CH)
  Receive Date: 20140829
  Receipt Date: 20140829
  Transmission Date: 20150326
  Serious: Yes (Other)
  Sender: FDA-Public Use
  Company Number: CH-PFIZER INC-2014238916

PATIENT
  Age: 29 Year
  Sex: Male
  Weight: 100 kg

DRUGS (3)
  1. LITHIOFOR [Concomitant]
     Active Substance: LITHIUM SULFATE
     Indication: BIPOLAR DISORDER
     Dosage: 1650 MG, 2X/DAY
     Route: 048
     Dates: start: 201108
  2. EFFEXOR [Suspect]
     Active Substance: VENLAFAXINE HYDROCHLORIDE
     Indication: BIPOLAR DISORDER
     Dosage: 450 MG, DAILY
     Route: 048
     Dates: start: 201307
  3. SEROQUEL [Suspect]
     Active Substance: QUETIAPINE FUMARATE
     Indication: BIPOLAR DISORDER
     Dosage: 800 MG, DAILY
     Route: 048
     Dates: start: 201301, end: 201404

REACTIONS (2)
  - Abnormal weight gain [Not Recovered/Not Resolved]
  - Congestive cardiomyopathy [Recovered/Resolved]

NARRATIVE: CASE EVENT DATE: 2013
